FAERS Safety Report 6251510-6 (Version None)
Quarter: 2009Q2

REPORT INFORMATION
  Report Type: 
  Country: None (occurrence: None)
  Receive Date: 20090626
  Receipt Date: 20090626
  Transmission Date: 20091009
  Serious: Yes (Hospitalization)
  Sender: FDA-Public Use
  Company Number: None

PATIENT
  Age: 68 Year
  Sex: Male

DRUGS (2)
  1. LEVETIRACETAM [Suspect]
     Indication: CONVULSION
     Dosage: 1000 MG TWICE DAILY
     Dates: start: 20090301
  2. HYDROCODONE/TYLENOL [Concomitant]

REACTIONS (3)
  - CONVULSION [None]
  - PRODUCT SUBSTITUTION ISSUE [None]
  - ROTATOR CUFF SYNDROME [None]
